FAERS Safety Report 8605760-1 (Version None)
Quarter: 2012Q3

REPORT INFORMATION
  Report Type: 
  Country: None (occurrence: None)
  Receive Date: 20120820
  Receipt Date: 20120806
  Transmission Date: 20120928
  Serious: Yes (Disabling)
  Sender: FDA-Public Use
  Company Number: GB-MYLANLABS-2012S1016207

PATIENT
  Age: 81 Year
  Sex: Female

DRUGS (3)
  1. DOXAZOSIN MESYLATE [Suspect]
     Indication: HYPERTENSION
     Route: 048
     Dates: start: 20040322, end: 20100401
  2. SOLIFENACIN SUCCINATE [Concomitant]
     Indication: BLADDER IRRITATION
     Route: 048
     Dates: start: 20090612
  3. ACETAMINOPHEN AND CODEINE PHOSPHATE [Concomitant]
     Indication: ARTHRITIS
     Route: 048
     Dates: start: 20080826

REACTIONS (1)
  - BALANCE DISORDER [None]
